FAERS Safety Report 9764341 (Version 3)
Quarter: 2014Q1

REPORT INFORMATION
  Report Type: Report from Study
  Country: DE (occurrence: DE)
  Receive Date: 20131217
  Receipt Date: 20140129
  Transmission Date: 20141002
  Serious: Yes (Hospitalization)
  Sender: FDA-Public Use
  Company Number: DE-BEH-2010026778

PATIENT
  Age: 61 Year
  Sex: Female
  Weight: 72 kg

DRUGS (13)
  1. PRIVIGEN [Suspect]
     Indication: IMMUNODEFICIENCY COMMON VARIABLE
     Dosage: START/STOP DATE: 10-FEB-2010 OR 11-FEB-2010, INFUSION RATE: MIN. 2 ML/MIN, MAX. 3 ML/MIN
     Dates: start: 20100211, end: 20100211
  2. PRIVIGEN [Suspect]
     Dosage: INFUSION RATE: MIN. 2 ML/MIN, MAX. 3 ML/MIN
     Dates: start: 20100415, end: 20100415
  3. PRIVIGEN [Suspect]
     Dosage: INFUSION RATE: MIN. 2 ML/MIN, MAX. 3 ML/MIN
     Dates: start: 20100614, end: 20100614
  4. INEGY 10/40 [DIFFICULT TO READ] [Concomitant]
  5. GAMMALICH 10/12.5 [DIFFICULT TO READ] [Concomitant]
  6. AMLODIPIN [Concomitant]
  7. CONCOR [Concomitant]
  8. ASS 100 [Concomitant]
  9. ASTONIN H [Concomitant]
  10. LEVEMIR [Concomitant]
  11. NOVORAPID [Concomitant]
  12. DELIX [Concomitant]
  13. NORVASC [Concomitant]

REACTIONS (3)
  - Hypertensive crisis [Recovered/Resolved]
  - Respiratory tract infection viral [Recovered/Resolved]
  - Pyrexia [Recovered/Resolved]
